FAERS Safety Report 5920203-4 (Version None)
Quarter: 2008Q4

REPORT INFORMATION
  Report Type: 
  Country: None (occurrence: None)
  Receive Date: 20081016
  Receipt Date: 20071012
  Transmission Date: 20090506
  Serious: No
  Sender: FDA-Public Use
  Company Number: A0687536A

PATIENT
  Sex: Female

DRUGS (1)
  1. CEFTIN [Suspect]

REACTIONS (1)
  - FEELING OF DESPAIR [None]
